FAERS Safety Report 10865993 (Version 1)
Quarter: 2015Q1

REPORT INFORMATION
  Report Type: Spontaneous
  Country: US (occurrence: US)
  Receive Date: 20150224
  Receipt Date: 20150224
  Transmission Date: 20150721
  Serious: Yes (Death, Other)
  Sender: FDA-Public Use
  Company Number: PHHY2015US021250

PATIENT
  Age: 8 Year
  Sex: Male

DRUGS (1)
  1. HEPARIN [Suspect]
     Active Substance: HEPARIN SODIUM
     Indication: THROMBOSIS
     Route: 041

REACTIONS (3)
  - Death [Fatal]
  - Cerebral artery thrombosis [Unknown]
  - Heparin-induced thrombocytopenia [Unknown]
